FAERS Safety Report 8967814 (Version 3)
Quarter: 2013Q3

REPORT INFORMATION
  Report Type: Report from Study
  Country: JP (occurrence: JP)
  Receive Date: 20121218
  Receipt Date: 20130905
  Transmission Date: 20140515
  Serious: Yes (Other)
  Sender: FDA-Public Use
  Company Number: JP-VERTEX PHARMACEUTICALS INC.-2012-026230

PATIENT
  Age: 47 Year
  Sex: Female

DRUGS (10)
  1. VX-950 (TELAPREVIR) [Suspect]
     Indication: CHRONIC HEPATITIS C
     Dosage: 1500 MG, QD
     Route: 048
     Dates: start: 20120914, end: 20121013
  2. VX-950 (TELAPREVIR) [Suspect]
     Dosage: 1000 MG, QD
     Route: 048
     Dates: start: 20121014, end: 20121208
  3. RIBAVIRIN [Suspect]
     Indication: CHRONIC HEPATITIS C
     Dosage: 600 MG, QD
     Route: 048
     Dates: start: 20120914, end: 20121005
  4. RIBAVIRIN [Suspect]
     Dosage: 400 MG, QD
     Route: 048
     Dates: start: 20121006, end: 20121102
  5. RIBAVIRIN [Suspect]
     Dosage: 200 MG, QD
     Route: 048
     Dates: start: 20121103, end: 20121220
  6. RIBAVIRIN [Suspect]
     Dosage: 400 MG, QD
     Route: 048
     Dates: start: 20121221, end: 20121228
  7. RIBAVIRIN [Suspect]
     Dosage: 600 MG, QD
     Route: 048
     Dates: start: 20121229
  8. PEGINTRON [Suspect]
     Indication: CHRONIC HEPATITIS C
     Dosage: 1.70 ?G/KG, QW
     Route: 058
     Dates: start: 20120914, end: 20121018
  9. PEGINTRON [Suspect]
     Dosage: 1.33 ?G/KG, QW
     Route: 058
     Dates: start: 20121019
  10. XYZAL [Concomitant]
     Dosage: 5 MG, QD
     Route: 048
     Dates: start: 20120914

REACTIONS (1)
  - White blood cell count decreased [Recovered/Resolved]
